FAERS Safety Report 7326324-6 (Version None)
Quarter: 2011Q1

REPORT INFORMATION
  Report Type: 
  Country: None (occurrence: None)
  Receive Date: 20110302
  Receipt Date: 20110217
  Transmission Date: 20110831
  Serious: Yes (Hospitalization, Other)
  Sender: FDA-Public Use
  Company Number: B0689894A

PATIENT
  Sex: Female

DRUGS (7)
  1. WARFARIN SODIUM [Suspect]
     Indication: EMBOLISM ARTERIAL
     Route: 048
     Dates: start: 20101007, end: 20101011
  2. AUGMENTIN '125' [Suspect]
     Dates: start: 20101007, end: 20101011
  3. HYDROXYZINE HYDROCHLORIDE [Suspect]
     Dates: start: 20101008, end: 20101009
  4. ACETAMINOPHEN [Suspect]
     Dates: start: 20101007, end: 20101011
  5. PLACEBO [Suspect]
     Indication: EMBOLISM ARTERIAL
     Dates: start: 20101007, end: 20101011
  6. UNKNOWN [Suspect]
     Indication: EMBOLISM ARTERIAL
     Route: 048
     Dates: start: 20101007, end: 20101011
  7. ENOXAPARIN [Suspect]
     Indication: EMBOLISM ARTERIAL
     Route: 058
     Dates: start: 20101007, end: 20101010

REACTIONS (5)
  - LUNG NEOPLASM MALIGNANT [None]
  - CHOLESTASIS [None]
  - ASPARTATE AMINOTRANSFERASE INCREASED [None]
  - ALANINE AMINOTRANSFERASE INCREASED [None]
  - CYTOLYTIC HEPATITIS [None]
